FAERS Safety Report 4711098-5 (Version None)
Quarter: 2005Q3

REPORT INFORMATION
  Report Type: 
  Country: None (occurrence: None)
  Receive Date: 20050711
  Receipt Date: 20050331
  Transmission Date: 20060218
  Serious: Yes (Other)
  Sender: FDA-Public Use
  Company Number: 200510657DE

PATIENT
  Age: 50 Year
  Sex: Male
  Weight: 97 kg

DRUGS (1)
  1. NAGEL BATRAFEN [Suspect]
     Route: 061

REACTIONS (3)
  - HEPATOCELLULAR DAMAGE [None]
  - PRURITUS [None]
  - TRANSAMINASES INCREASED [None]
